FAERS Safety Report 4957877-0 (Version None)
Quarter: 2006Q1

REPORT INFORMATION
  Report Type: 
  Country: None (occurrence: None)
  Receive Date: 20060127
  Receipt Date: 20050812
  Transmission Date: 20060701
  Serious: Yes (Death)
  Sender: FDA-Public Use
  Company Number: 05-08-1434

PATIENT
  Age: 49 Year
  Sex: Male

DRUGS (6)
  1. CLOZAPINE [Suspect]
     Indication: SCHIZOPHRENIA
     Dosage: 50 MG GAM, 200MG QHS; ORAL
     Route: 048
     Dates: start: 20030401, end: 20050801
  2. TIAGABINE HYDROCHLORIDE [Concomitant]
  3. ARIPIPRAZOLE [Concomitant]
  4. AMITRIPTYLINE HCL [Concomitant]
  5. CLONAZEPAM [Concomitant]
  6. VALPROATE SODIUM [Concomitant]

REACTIONS (1)
  - UNEVALUABLE EVENT [None]
